FAERS Safety Report 6149198-8 (Version None)
Quarter: 2009Q2

REPORT INFORMATION
  Report Type: 
  Country: None (occurrence: None)
  Receive Date: 20090409
  Receipt Date: 20090402
  Transmission Date: 20091009
  Serious: Yes (Hospitalization)
  Sender: FDA-Public Use
  Company Number: US-B.I. PHARMACEUTICALS,INC./RIDGEFIELD-2009-BP-04145BP

PATIENT
  Sex: Male

DRUGS (2)
  1. FLOMAX [Suspect]
     Indication: PROSTATE CANCER
     Dosage: .4MG
     Route: 048
     Dates: start: 20080701
  2. LISINOPRIL [Concomitant]
     Indication: HYPERTENSION

REACTIONS (7)
  - ABDOMINAL PAIN [None]
  - DEPRESSION [None]
  - DIZZINESS [None]
  - KIDNEY INFECTION [None]
  - LETHARGY [None]
  - NEPHROLITHIASIS [None]
  - VESICAL FISTULA [None]
